FAERS Safety Report 7281826-6 (Version None)
Quarter: 2011Q1

REPORT INFORMATION
  Report Type: 
  Country: None (occurrence: None)
  Receive Date: 20110208
  Receipt Date: 20110201
  Transmission Date: 20110831
  Serious: Yes (Hospitalization)
  Sender: FDA-Public Use
  Company Number: FR-PFIZER INC-2011023559

PATIENT
  Age: 1 Hour
  Sex: Female
  Weight: 1.7 kg

DRUGS (3)
  1. CORTANCYL [Concomitant]
     Dosage: UNK
     Route: 064
  2. VINCRISTINE SULFATE [Suspect]
     Dosage: 2 MG, CYCLIC
     Route: 064
     Dates: start: 20101021, end: 20101028
  3. SOLU-MEDROL [Suspect]
     Dosage: UNK
     Route: 064
     Dates: start: 20101004

REACTIONS (2)
  - PREMATURE BABY [None]
  - DRUG EXPOSURE DURING PREGNANCY [None]
